FAERS Safety Report 5603698-5 (Version None)
Quarter: 2008Q1

REPORT INFORMATION
  Report Type: 
  Country: None (occurrence: None)
  Receive Date: 20080128
  Receipt Date: 20080111
  Transmission Date: 20080703
  Serious: Yes (Death)
  Sender: FDA-Public Use
  Company Number: US-BAYER-200811378GPV

PATIENT
  Age: 49 Year
  Sex: Male

DRUGS (9)
  1. ASPIRIN [Suspect]
     Indication: DRUG USE FOR UNKNOWN INDICATION
     Route: 048
  2. VENLAFAXINE HCL [Suspect]
     Indication: DRUG USE FOR UNKNOWN INDICATION
     Route: 048
  3. GABAPENTIN [Suspect]
     Indication: DRUG USE FOR UNKNOWN INDICATION
     Route: 048
  4. AMLODIPINE [Suspect]
     Indication: DRUG USE FOR UNKNOWN INDICATION
     Route: 048
  5. DIAZEPAM [Suspect]
     Indication: DRUG USE FOR UNKNOWN INDICATION
     Route: 048
  6. IMIPRAMINE [Suspect]
     Indication: DRUG USE FOR UNKNOWN INDICATION
     Route: 048
  7. BETA BLOCKER [Suspect]
     Indication: DRUG USE FOR UNKNOWN INDICATION
  8. LISINOPRIL [Suspect]
     Indication: DRUG USE FOR UNKNOWN INDICATION
     Route: 048
  9. HYDROCHLOROTHIAZIDE [Suspect]
     Indication: DRUG USE FOR UNKNOWN INDICATION
     Route: 048

REACTIONS (1)
  - DRUG TOXICITY [None]
